FAERS Safety Report 8304353-3 (Version None)
Quarter: 2012Q2

REPORT INFORMATION
  Report Type: 
  Country: None (occurrence: None)
  Receive Date: 20120423
  Receipt Date: 20120409
  Transmission Date: 20120825
  Serious: Yes (Other)
  Sender: FDA-Public Use
  Company Number: US-SANOFI-AVENTIS-2012SA024842

PATIENT
  Age: 28 Year
  Sex: Female

DRUGS (6)
  1. LOVENOX [Suspect]
  2. LEXAPRO [Suspect]
  3. ASPIRIN [Suspect]
  4. ALL OTHER THERAPEUTIC PRODUCTS [Suspect]
  5. METFORMIN HCL [Suspect]
  6. ALL OTHER THERAPEUTIC PRODUCTS [Suspect]
     Route: 048

REACTIONS (2)
  - MATERNAL EXPOSURE DURING PREGNANCY [None]
  - ABORTION SPONTANEOUS [None]
